FAERS Safety Report 5788341-7 (Version None)
Quarter: 2008Q2

REPORT INFORMATION
  Report Type: 
  Country: None (occurrence: None)
  Receive Date: 20080620
  Receipt Date: 20080616
  Transmission Date: 20081010
  Serious: Yes (Other)
  Sender: FDA-Public Use
  Company Number: 2008SP011870

PATIENT
  Sex: Female

DRUGS (15)
  1. INTRON A [Suspect]
     Indication: HEPATITIS C
     Dosage: ; TIW;, ; QD;
  2. INTRON A [Suspect]
     Indication: HEPATITIS C
     Dosage: ; TIW;, ; QD;
     Dates: start: 19980101
  3. LAMICTAL [Suspect]
     Indication: DRUG USE FOR UNKNOWN INDICATION
  4. TOPAMAX [Suspect]
     Indication: DRUG USE FOR UNKNOWN INDICATION
  5. MILK THISTLE [Concomitant]
  6. ASCORBIC ACID [Concomitant]
  7. VITAMIN D2 [Concomitant]
  8. VITAMIN D3 [Concomitant]
  9. VITAMIN B-12 [Concomitant]
  10. B6 [Concomitant]
  11. B100 [Concomitant]
  12. MSM [Concomitant]
  13. CALCIUM [Concomitant]
  14. FOLIC ACID [Concomitant]
  15. VITAMINS [Concomitant]

REACTIONS (9)
  - ALOPECIA [None]
  - BIPOLAR DISORDER [None]
  - DEPRESSION [None]
  - IMMUNE SYSTEM DISORDER [None]
  - KERATOCONJUNCTIVITIS SICCA [None]
  - LIVER DISORDER [None]
  - MUSCLE SPASMS [None]
  - THYROID DISORDER [None]
  - TOOTH DISORDER [None]
